FAERS Safety Report 5856421-3 (Version None)
Quarter: 2008Q3

REPORT INFORMATION
  Report Type: 
  Country: None (occurrence: None)
  Receive Date: 20080822
  Receipt Date: 20080822
  Transmission Date: 20090109
  Serious: No
  Sender: FDA-Public Use
  Company Number: None

PATIENT
  Sex: Male
  Weight: 66.2252 kg

DRUGS (1)
  1. IPRATROPIUM BROMIDE .5MG ALBUTEROL SULFATE 3.0 MG [Suspect]
     Dosage: TWICE DAILY
     Dates: start: 20080410, end: 20080805

REACTIONS (2)
  - SKIN BURNING SENSATION [None]
  - SKIN EXFOLIATION [None]
